FAERS Safety Report 16559632 (Version 1)
Quarter: 2019Q3

REPORT INFORMATION
  Report Type: Spontaneous
  Country: FR (occurrence: FR)
  Receive Date: 20190711
  Receipt Date: 20190711
  Transmission Date: 20191004
  Serious: Yes (Death)
  Sender: FDA-Public Use
  Company Number: FR-ROCHE-2352971

PATIENT
  Age: 27 Year
  Sex: Male
  Weight: 68 kg

DRUGS (5)
  1. HALDOL [Suspect]
     Active Substance: HALOPERIDOL
     Indication: AGITATION
     Dosage: STRENGTH: 2 MG/ML
     Route: 048
     Dates: start: 20190620, end: 20190622
  2. MOVICOL [Concomitant]
     Active Substance: POLYETHYLENE GLYCOL 3350\POTASSIUM CHLORIDE\SODIUM BICARBONATE\SODIUM CHLORIDE
  3. VALIUM [Concomitant]
     Active Substance: DIAZEPAM
     Indication: AGITATION
     Dosage: EN GOUTTE : 15-15-15-15-30 SOIT 30 MG/J DOSE TOTALE
     Route: 048
     Dates: start: 20190619, end: 20190622
  4. LOXAPAC [LOXAPINE] [Suspect]
     Active Substance: LOXAPINE
     Indication: AGITATION
     Dosage: 2 AMPOULES?STRENGTH: 50 MG/2 ML
     Route: 030
     Dates: start: 20190618, end: 20190622
  5. VALIUM [Suspect]
     Active Substance: DIAZEPAM
     Indication: AGITATION
     Dosage: 1 AMPOULE SI AGITATION OU REFUS DU TTT PER OS?10 MG/2 ML
     Route: 065
     Dates: start: 20190622, end: 20190622

REACTIONS (1)
  - Cardio-respiratory arrest [Fatal]

NARRATIVE: CASE EVENT DATE: 20190622
